FAERS Safety Report 16207055 (Version 2)
Quarter: 2021Q2

REPORT INFORMATION
  Report Type: Report from Study
  Country: CA (occurrence: CA)
  Receive Date: 20190417
  Receipt Date: 20210628
  Transmission Date: 20210716
  Serious: Yes (Other)
  Sender: FDA-Public Use
  Company Number: CA-JNJFOC-20190419483

PATIENT
  Age: 22 Year
  Sex: Male

DRUGS (1)
  1. SIMPONI [Suspect]
     Active Substance: GOLIMUMAB
     Indication: CROHN^S DISEASE
     Dosage: STRENGTH = 100 MG
     Route: 058
     Dates: start: 20131028, end: 20170801

REACTIONS (3)
  - Enterostomy [Unknown]
  - Anal abscess [Not Recovered/Not Resolved]
  - Abdominal pain [Not Recovered/Not Resolved]
